FAERS Safety Report 12598410 (Version 1)
Quarter: 2016Q3

REPORT INFORMATION
  Report Type: Spontaneous
  Country: US (occurrence: US)
  Receive Date: 20160726
  Receipt Date: 20160726
  Transmission Date: 20161109
  Serious: No
  Sender: FDA-Public Use
  Company Number: US-AKRIMAX-TIR-2016-0481

PATIENT
  Age: 55 Year
  Sex: Female
  Weight: 48.12 kg

DRUGS (1)
  1. TIROSINT [Suspect]
     Active Substance: LEVOTHYROXINE SODIUM
     Indication: HYPOTHYROIDISM
     Dosage: ONE CAPSULE DAILY
     Route: 048
     Dates: start: 20160423

REACTIONS (6)
  - Incorrect drug dosage form administered [Unknown]
  - Feeling jittery [Recovered/Resolved]
  - Hypothyroidism [Recovered/Resolved]
  - Anxiety [Recovered/Resolved]
  - Nervousness [Recovered/Resolved]
  - Tremor [Recovered/Resolved]

NARRATIVE: CASE EVENT DATE: 20160423
